FAERS Safety Report 15505177 (Version 1)
Quarter: 2018Q4

REPORT INFORMATION
  Report Type: Spontaneous
  Country: US (occurrence: US)
  Receive Date: 20181009
  Receipt Date: 20181009
  Transmission Date: 20190205
  Serious: No
  Sender: FDA-Public Use
  Company Number: None

PATIENT
  Age: 50 Year
  Sex: Female

DRUGS (1)
  1. GLATIRAMER 40 MG PFS INJ (12/BOX) [Suspect]
     Active Substance: GLATIRAMER
     Dates: start: 20180926, end: 20181004

REACTIONS (4)
  - Eye swelling [None]
  - Fatigue [None]
  - Malaise [None]
  - Swelling face [None]

NARRATIVE: CASE EVENT DATE: 20181005
